FAERS Safety Report 7366758-7 (Version None)
Quarter: 2011Q1

REPORT INFORMATION
  Report Type: 
  Country: None (occurrence: None)
  Receive Date: 20110322
  Receipt Date: 20110316
  Transmission Date: 20110831
  Serious: Yes (Other)
  Sender: FDA-Public Use
  Company Number: AR-PFIZER INC-2011060011

PATIENT
  Age: 34 Year
  Sex: Female

DRUGS (1)
  1. SUTENT [Suspect]
     Indication: ALVEOLAR SOFT PART SARCOMA METASTATIC
     Dosage: 50 MG, 1X/DAY
     Route: 048
     Dates: start: 20110101

REACTIONS (7)
  - COUGH [None]
  - URINARY TRACT INFECTION [None]
  - ABDOMINAL DISTENSION [None]
  - GLOSSODYNIA [None]
  - HAEMOPTYSIS [None]
  - TONGUE DISORDER [None]
  - PYREXIA [None]
